FAERS Safety Report 16626196 (Version 2)
Quarter: 2019Q3

REPORT INFORMATION
  Report Type: Spontaneous
  Country: GB (occurrence: GB)
  Receive Date: 20190724
  Receipt Date: 20190827
  Transmission Date: 20191004
  Serious: Yes (Other)
  Sender: FDA-Public Use
  Company Number: PHHY2019GB166153

PATIENT

DRUGS (1)
  1. SIMBRINZA [Suspect]
     Active Substance: BRIMONIDINE TARTRATE\BRINZOLAMIDE
     Indication: PRODUCT USED FOR UNKNOWN INDICATION
     Route: 047

REACTIONS (16)
  - Insomnia [Unknown]
  - Retinal injury [Unknown]
  - Drug hypersensitivity [Unknown]
  - Hypertension [Unknown]
  - Nightmare [Unknown]
  - Eye irritation [Unknown]
  - Memory impairment [Unknown]
  - Ocular hyperaemia [Unknown]
  - Blindness [Unknown]
  - General physical condition decreased [Unknown]
  - Conjunctivitis [Unknown]
  - Renal disorder [Unknown]
  - Pruritus [Unknown]
  - Eye disorder [Unknown]
  - Depression [Unknown]
  - Product quality issue [Unknown]
